FAERS Safety Report 20475709 (Version 4)
Quarter: 2022Q3

REPORT INFORMATION
  Report Type: Report from Study
  Country: US (occurrence: US)
  Receive Date: 20220215
  Receipt Date: 20220915
  Transmission Date: 20221027
  Serious: Yes (Hospitalization)
  Sender: FDA-Public Use
  Company Number: US-BAYER-2022A023376

PATIENT
  Age: 69 Year
  Sex: Female
  Weight: 89.796 kg

DRUGS (7)
  1. ADEMPAS [Suspect]
     Active Substance: RIOCIGUAT
     Indication: Pulmonary arterial hypertension
     Dosage: UNK
     Route: 048
     Dates: start: 20220214
  2. ADEMPAS [Suspect]
     Active Substance: RIOCIGUAT
     Indication: Pulmonary arterial hypertension
     Dosage: 2.5 MG, TID
     Route: 048
  3. ADEMPAS [Suspect]
     Active Substance: RIOCIGUAT
     Indication: Pulmonary arterial hypertension
     Dosage: 2.5 MG, TID
     Route: 048
  4. TREPROSTINIL [Suspect]
     Active Substance: TREPROSTINIL
     Route: 058
  5. ELIQUIS [Concomitant]
     Active Substance: APIXABAN
  6. DILTIAZEM [Concomitant]
     Active Substance: DILTIAZEM
  7. OPSUMIT [Concomitant]
     Active Substance: MACITENTAN

REACTIONS (5)
  - Hospitalisation [None]
  - Haemoptysis [Recovering/Resolving]
  - Injection site erythema [None]
  - Infusion site infection [Recovering/Resolving]
  - Infusion site haematoma [None]
